FAERS Safety Report 8833844 (Version 2)
Quarter: 2014Q4

REPORT INFORMATION
  Report Type: Spontaneous
  Country: IN (occurrence: IN)
  Receive Date: 20121011
  Receipt Date: 20141111
  Transmission Date: 20150529
  Serious: Yes (Hospitalization)
  Sender: FDA-Public Use
  Company Number: IN-RANBAXY-2012R1-60794

PATIENT
  Age: 58 Year
  Sex: Female

DRUGS (5)
  1. QUETIAPINE [Concomitant]
     Active Substance: QUETIAPINE
     Indication: PRODUCT USED FOR UNKNOWN INDICATION
     Dosage: 200 MG, DAILY
     Route: 065
  2. LEVOTHYROXINE [Concomitant]
     Active Substance: LEVOTHYROXINE
     Indication: HYPERTHYROIDISM
     Dosage: 50 ?G, DAILY
     Route: 065
  3. HYDROCHLOROTHIAZIDE/TELMISARTAN [Suspect]
     Active Substance: HYDROCHLOROTHIAZIDE\TELMISARTAN
     Indication: HYPERTENSION
     Dosage: UNK
     Route: 065
  4. ACECLOFENAC (100MG) + PARACETAMOL (500 MG) [Interacting]
     Active Substance: ACECLOFENAC\ACETAMINOPHEN
     Indication: OSTEOARTHRITIS
     Dosage: UNK
     Route: 065
  5. LITHIUM [Interacting]
     Active Substance: LITHIUM CARBONATE
     Indication: BIPOLAR DISORDER
     Dosage: 600 MG, DAILY
     Route: 065

REACTIONS (14)
  - Arthralgia [None]
  - Hypertension [None]
  - Osteoarthritis [None]
  - Ataxia [None]
  - Haemodialysis [None]
  - Insomnia [None]
  - Toxicity to various agents [Recovering/Resolving]
  - Drug interaction [Recovering/Resolving]
  - Somnolence [None]
  - Blood creatinine increased [None]
  - Dysarthria [None]
  - Tremor [None]
  - Blood urea increased [None]
  - Neurological symptom [None]
